FAERS Safety Report 7720390-1 (Version None)
Quarter: 2011Q3

REPORT INFORMATION
  Report Type: 
  Country: None (occurrence: None)
  Receive Date: 20110825
  Receipt Date: 20110816
  Transmission Date: 20111222
  Serious: Yes (Other)
  Sender: FDA-Public Use
  Company Number: TPA2011A04970

PATIENT
  Age: 70 Year
  Sex: Female
  Weight: 108.8633 kg

DRUGS (2)
  1. LEVOTHYROXINE SODIUM [Concomitant]
  2. ACTOPLUS MET [Suspect]
     Indication: DIABETES MELLITUS
     Dosage: 15 MG/850 MG BID, PER ORAL
     Route: 048
     Dates: start: 20100601

REACTIONS (2)
  - THYROID NEOPLASM [None]
  - LOCAL SWELLING [None]
